FAERS Safety Report 13747540 (Version 1)
Quarter: 2017Q3

REPORT INFORMATION
  Report Type: Spontaneous
  Country: DE (occurrence: DE)
  Receive Date: 20170712
  Receipt Date: 20170712
  Transmission Date: 20171127
  Serious: Yes (Other)
  Sender: FDA-Public Use
  Company Number: DE-BAYER-2017-132755

PATIENT
  Age: 43 Year
  Sex: Female
  Weight: 78 kg

DRUGS (1)
  1. MIRENA [Suspect]
     Active Substance: LEVONORGESTREL
     Indication: CONTRACEPTION
     Dosage: 20 MCG/24HR, CONT
     Route: 015
     Dates: start: 20151002

REACTIONS (4)
  - Acne [None]
  - Ovarian cyst [Unknown]
  - Cervical dysplasia [Recovered/Resolved]
  - Uterine polyp [Recovered/Resolved]

NARRATIVE: CASE EVENT DATE: 20160101
